FAERS Safety Report 15823502 (Version 1)
Quarter: 2019Q1

REPORT INFORMATION
  Report Type: Spontaneous
  Country: DE (occurrence: DE)
  Receive Date: 20190114
  Receipt Date: 20190114
  Transmission Date: 20190417
  Serious: Yes (Other)
  Sender: FDA-Public Use
  Company Number: PHHY2019DE005326

PATIENT
  Age: 65 Year
  Sex: Male

DRUGS (1)
  1. COTRIM FORTE [Suspect]
     Active Substance: SULFAMETHOXAZOLE\TRIMETHOPRIM
     Indication: PRODUCT USED FOR UNKNOWN INDICATION
     Dosage: INTAKE OF ONE TABLET
     Route: 048

REACTIONS (1)
  - Foreign body aspiration [Unknown]

NARRATIVE: CASE EVENT DATE: 20181219
